FAERS Safety Report 4549605-8 (Version None)
Quarter: 2005Q1

REPORT INFORMATION
  Report Type: 
  Country: None (occurrence: None)
  Receive Date: 20050106
  Receipt Date: 20041228
  Transmission Date: 20050727
  Serious: Yes (Other)
  Sender: FDA-Public Use
  Company Number: 2004120788

PATIENT
  Age: 72 Year
  Sex: Female
  Weight: 87.5442 kg

DRUGS (4)
  1. DETROL LA [Suspect]
     Indication: HYPERTONIC BLADDER
     Dosage: 4 MG (4 MG), ORAL
     Route: 048
     Dates: start: 20020101
  2. SIMVASTATIN [Concomitant]
  3. SERTRALINE HCL [Concomitant]
  4. CELECOXIB (CELECOXIB) [Concomitant]

REACTIONS (7)
  - ATRIAL FIBRILLATION [None]
  - DISORIENTATION [None]
  - HEADACHE [None]
  - INSOMNIA [None]
  - NERVOUSNESS [None]
  - SOMNOLENCE [None]
  - WEIGHT DECREASED [None]
